FAERS Safety Report 9548930 (Version 2)
Quarter: 2013Q3

REPORT INFORMATION
  Report Type: Spontaneous
  Country: FR (occurrence: FR)
  Receive Date: 20130924
  Receipt Date: 20130924
  Transmission Date: 20140515
  Serious: Yes (Death, Other)
  Sender: FDA-Public Use
  Company Number: FR-B.I. PHARMACEUTICALS,INC./RIDGEFIELD-2013-FF-02251FF

PATIENT
  Age: 92 Year
  Sex: Male

DRUGS (9)
  1. PRADAXA [Suspect]
     Dosage: 220 MG
     Route: 048
     Dates: end: 20130625
  2. LASILIX SPECIAL [Concomitant]
     Route: 048
     Dates: start: 20130619
  3. ALDACTONE [Concomitant]
     Dosage: 25 MG
     Route: 048
     Dates: start: 20130619
  4. HEMIGOXINE NATIVELLE [Concomitant]
     Dosage: 0.125 MG
     Route: 048
     Dates: start: 20130619
  5. SERESTA [Concomitant]
     Dosage: 10 MG
     Route: 048
  6. INEXIUM [Concomitant]
     Dosage: 20 MG
     Route: 048
  7. FORLAX [Concomitant]
     Dosage: 20 G
     Route: 048
     Dates: start: 20130531
  8. DAFALGAN [Concomitant]
     Route: 048
  9. DIFFU K [Concomitant]
     Route: 048
     Dates: start: 20130617

REACTIONS (3)
  - Death [Fatal]
  - Gastrointestinal haemorrhage [Recovered/Resolved]
  - Haematemesis [Recovered/Resolved]
